FAERS Safety Report 8159829-9 (Version None)
Quarter: 2012Q1

REPORT INFORMATION
  Report Type: 
  Country: None (occurrence: None)
  Receive Date: 20120223
  Receipt Date: 20120221
  Transmission Date: 20120608
  Serious: Yes (Other)
  Sender: FDA-Public Use
  Company Number: AU-PFIZER INC-2012046041

PATIENT
  Sex: Male

DRUGS (1)
  1. EFFEXOR XR [Suspect]
     Indication: DEPRESSION
     Dosage: UNK

REACTIONS (5)
  - SELF INJURIOUS BEHAVIOUR [None]
  - TREMOR [None]
  - WITHDRAWAL SYNDROME [None]
  - PARAESTHESIA [None]
  - HEADACHE [None]
